FAERS Safety Report 4855532-9 (Version None)
Quarter: 2005Q4

REPORT INFORMATION
  Report Type: 
  Country: None (occurrence: None)
  Receive Date: 20051216
  Receipt Date: 20051205
  Transmission Date: 20060501
  Serious: Yes (Other)
  Sender: FDA-Public Use
  Company Number: SE-BRISTOL-MYERS SQUIBB COMPANY-13205067

PATIENT
  Age: 60 Year
  Sex: Female

DRUGS (1)
  1. PRAVACHOL [Suspect]
     Indication: MYOCARDIAL INFARCTION

REACTIONS (4)
  - HAEMORRHAGE [None]
  - HYPERHIDROSIS [None]
  - PAIN [None]
  - SYNCOPE [None]
